FAERS Safety Report 6770722-6 (Version None)
Quarter: 2010Q2

REPORT INFORMATION
  Report Type: 
  Country: None (occurrence: None)
  Receive Date: 20100615
  Receipt Date: 20100607
  Transmission Date: 20101027
  Serious: Yes (Other)
  Sender: FDA-Public Use
  Company Number: US-GENENTECH-302842

PATIENT

DRUGS (2)
  1. NUTROPIN [Suspect]
     Indication: IMMUNODEFICIENCY
     Dosage: UNK
     Route: 058
  2. ANTIRETROVIRALS [Suspect]
     Indication: IMMUNODEFICIENCY

REACTIONS (1)
  - ANAL CANCER [None]
